FAERS Safety Report 8053185-2 (Version None)
Quarter: 2012Q1

REPORT INFORMATION
  Report Type: 
  Country: None (occurrence: None)
  Receive Date: 20120118
  Receipt Date: 20120111
  Transmission Date: 20120608
  Serious: Yes (Other)
  Sender: FDA-Public Use
  Company Number: GB-B.I. PHARMACEUTICALS,INC./RIDGEFIELD-2011-UK-01233UK

PATIENT
  Age: 81 Year
  Sex: Male

DRUGS (2)
  1. PRADAXA [Suspect]
     Indication: KNEE OPERATION
     Dosage: 150 MG
  2. PRADAXA [Suspect]
     Indication: THROMBOSIS PROPHYLAXIS
     Dosage: 75 MG

REACTIONS (4)
  - POST PROCEDURAL HAEMATOMA [None]
  - RENAL IMPAIRMENT [None]
  - WOUND HAEMORRHAGE [None]
  - HAEMATEMESIS [None]
